FAERS Safety Report 24410146 (Version 1)
Quarter: 2024Q4

REPORT INFORMATION
  Report Type: Spontaneous
  Country: CN (occurrence: CN)
  Receive Date: 20241008
  Receipt Date: 20241008
  Transmission Date: 20250114
  Serious: Yes (Other)
  Sender: ABBVIE
  Company Number: CN-ABBVIE-5952228

PATIENT
  Age: 61 Year
  Sex: Male

DRUGS (4)
  1. VENETOCLAX [Suspect]
     Active Substance: VENETOCLAX
     Indication: Acute promyelocytic leukaemia
     Dosage: DAY 1
     Route: 048
  2. VENETOCLAX [Suspect]
     Active Substance: VENETOCLAX
     Indication: Acute promyelocytic leukaemia
     Dosage: DAY 2
     Route: 048
  3. VENETOCLAX [Suspect]
     Active Substance: VENETOCLAX
     Indication: Acute promyelocytic leukaemia
     Dosage: DAY 3 TO 7
     Route: 048
  4. AZACITIDINE [Suspect]
     Active Substance: AZACITIDINE
     Indication: Acute promyelocytic leukaemia
     Dosage: DAY 1 TO 7
     Route: 065

REACTIONS (2)
  - Agranulocytosis [Unknown]
  - Off label use [Unknown]
